FAERS Safety Report 13236332 (Version 3)
Quarter: 2017Q2

REPORT INFORMATION
  Report Type: Spontaneous
  Country: None (occurrence: US)
  Receive Date: 20170215
  Receipt Date: 20170404
  Transmission Date: 20170830
  Serious: No
  Sender: FDA-Public Use
  Company Number: US-RARE DISEASE THERAPEUTICS, INC.-1063121

PATIENT
  Age: 35 Year
  Sex: Female
  Weight: 88.45 kg

DRUGS (11)
  1. COMBIVENT [Concomitant]
     Active Substance: ALBUTEROL SULFATE\IPRATROPIUM BROMIDE
  2. WARFARIN SODIUM. [Concomitant]
     Active Substance: WARFARIN SODIUM
  3. MONTELUKAST [Concomitant]
     Active Substance: MONTELUKAST SODIUM
  4. METANX [Concomitant]
     Active Substance: LEVOMEFOLATE CALCIUM\METHYLCOBALAMIN\PYRIDOXAL PHOSPHATE ANHYDROUS
  5. CYSTADANE [Suspect]
     Active Substance: BETAINE
     Dates: start: 20150715, end: 20160616
  6. AXID [Concomitant]
     Active Substance: NIZATIDINE
  7. ALLEGRA D-12 HOUR [Concomitant]
     Active Substance: FEXOFENADINE HYDROCHLORIDE\PSEUDOEPHEDRINE HYDROCHLORIDE
  8. CYSTADANE [Suspect]
     Active Substance: BETAINE
     Dates: start: 20160617
  9. CYSTADANE [Suspect]
     Active Substance: BETAINE
     Indication: CYSTATHIONINE BETA-SYNTHASE DEFICIENCY
     Dates: start: 20140714, end: 20160616
  10. VENTOLIN HFA [Concomitant]
     Active Substance: ALBUTEROL SULFATE
  11. DULERA [Concomitant]
     Active Substance: FORMOTEROL FUMARATE DIHYDRATE\MOMETASONE FUROATE

REACTIONS (6)
  - Neck pain [Not Recovered/Not Resolved]
  - Overdose [None]
  - Visual acuity reduced [Not Recovered/Not Resolved]
  - Headache [Not Recovered/Not Resolved]
  - Inappropriate schedule of drug administration [None]
  - Dyspepsia [Not Recovered/Not Resolved]

NARRATIVE: CASE EVENT DATE: 20140714
